FAERS Safety Report 4558847-7 (Version None)
Quarter: 2005Q1

REPORT INFORMATION
  Report Type: 
  Country: None (occurrence: None)
  Receive Date: 20050121
  Receipt Date: 20041206
  Transmission Date: 20050727
  Serious: Yes (Hospitalization, Other)
  Sender: FDA-Public Use
  Company Number: US-AMGEN-KDL103343

PATIENT
  Sex: Female

DRUGS (2)
  1. ENBREL [Suspect]
     Indication: RHEUMATOID ARTHRITIS
     Route: 058
     Dates: start: 20000120
  2. METHOTREXATE [Concomitant]

REACTIONS (3)
  - CELLULITIS [None]
  - KNEE ARTHROPLASTY [None]
  - POSTOPERATIVE INFECTION [None]
